FAERS Safety Report 8288621-X (Version None)
Quarter: 2012Q2

REPORT INFORMATION
  Report Type: 
  Country: None (occurrence: None)
  Receive Date: 20120416
  Receipt Date: 20120112
  Transmission Date: 20120825
  Serious: Yes (Hospitalization, Other)
  Sender: FDA-Public Use
  Company Number: PHHO2011ES021358

PATIENT
  Sex: Male
  Weight: 95.6 kg

DRUGS (6)
  1. ASPIRIN [Concomitant]
     Dosage: UNK
     Dates: start: 20080101
  2. CARVEDILOL [Concomitant]
     Dosage: UNK
     Dates: start: 20111006
  3. AMIODARONE HCL [Concomitant]
     Dosage: UNK
     Dates: start: 20110601
  4. ALISKIREN [Suspect]
     Indication: CARDIAC FAILURE
     Dosage: UNK
     Route: 048
     Dates: start: 20111201, end: 20111219
  5. ENALAPRIL MALEATE [Suspect]
     Indication: CARDIAC FAILURE
     Dosage: UNK
     Route: 048
     Dates: start: 20111201, end: 20111201
  6. SINTROM [Concomitant]

REACTIONS (4)
  - CARDIAC FAILURE ACUTE [None]
  - CONCOMITANT DISEASE PROGRESSION [None]
  - RENAL FAILURE CHRONIC [None]
  - GASTROINTESTINAL ANGIODYSPLASIA [None]
